FAERS Safety Report 7493586-4 (Version None)
Quarter: 2011Q2

REPORT INFORMATION
  Report Type: 
  Country: None (occurrence: None)
  Receive Date: 20110520
  Receipt Date: 20110513
  Transmission Date: 20111010
  Serious: Yes (Other)
  Sender: FDA-Public Use
  Company Number: NL-AMGEN-NLDSP2011010916

PATIENT
  Age: 39 Year
  Sex: Female
  Weight: 75 kg

DRUGS (2)
  1. PREDNISOLON                        /00016201/ [Concomitant]
     Dosage: 30 MG, UNK
     Dates: start: 20020101
  2. ENBREL [Suspect]
     Indication: PRODUCT USED FOR UNKNOWN INDICATION
     Dosage: 50 MG, WEEKLY
     Dates: start: 20101104

REACTIONS (3)
  - HYPOAESTHESIA [None]
  - INJECTION SITE ABSCESS [None]
  - EPILEPSY [None]
